FAERS Safety Report 15621400 (Version 1)
Quarter: 2018Q4

REPORT INFORMATION
  Report Type: Spontaneous
  Country: NL (occurrence: NL)
  Receive Date: 20181115
  Receipt Date: 20181115
  Transmission Date: 20190205
  Serious: Yes (Other)
  Sender: FDA-Public Use
  Company Number: NL-HIKMA PHARMACEUTICALS USA INC.-NL-H14001-18-08330

PATIENT
  Age: 92 Year
  Sex: Male

DRUGS (1)
  1. AMOXICILLIN+CLAVULANIC ACID [Suspect]
     Active Substance: AMOXICILLIN\CLAVULANIC ACID
     Indication: PNEUMONIA
     Dosage: 500/125 MG
     Route: 048
     Dates: start: 20180228, end: 20180311

REACTIONS (2)
  - Diarrhoea [Unknown]
  - Faeces discoloured [Unknown]
